FAERS Safety Report 4281667-8 (Version None)
Quarter: 2004Q1

REPORT INFORMATION
  Report Type: 
  Country: None (occurrence: None)
  Receive Date: 20040128
  Receipt Date: 20040119
  Transmission Date: 20041129
  Serious: Yes (Hospitalization)
  Sender: FDA-Public Use
  Company Number: 2004195384AU

PATIENT
  Age: 60 Year
  Sex: Female

DRUGS (2)
  1. CELEBREX [Suspect]
     Dosage: 200 MG, QD
     Dates: start: 20040116
  2. LAMICTAL [Concomitant]

REACTIONS (2)
  - CIRCULATORY COLLAPSE [None]
  - COMA [None]
